FAERS Safety Report 24392488 (Version 1)
Quarter: 2024Q4

REPORT INFORMATION
  Report Type: Spontaneous
  Country: US (occurrence: None)
  Receive Date: 20241002
  Receipt Date: 20241002
  Transmission Date: 20250114
  Serious: Yes (Life-Threatening, Hospitalization, Other)
  Sender: Public
  Company Number: None

PATIENT
  Age: 71 Year
  Sex: Male
  Weight: 102.06 kg

DRUGS (25)
  1. OZEMPIC [Suspect]
     Active Substance: SEMAGLUTIDE
     Indication: Weight decreased
     Dosage: OTHER QUANTITY : 1 INJECTION(S);?OTHER FREQUENCY : OTHER;?
     Route: 058
     Dates: start: 20240529, end: 20240707
  2. OZEMPIC [Suspect]
     Active Substance: SEMAGLUTIDE
     Indication: Type 2 diabetes mellitus
  3. GLIMEPIRIDE [Suspect]
     Active Substance: GLIMEPIRIDE
  4. ATORVASTIN CALCIUM [Concomitant]
  5. METFORMIN [Concomitant]
     Active Substance: METFORMIN HYDROCHLORIDE
  6. LEVOTHYROXINE [Concomitant]
     Active Substance: LEVOTHYROXINE
  7. TRESIBA [Concomitant]
     Active Substance: INSULIN DEGLUDEC
  8. VALACYCLOVIR [Concomitant]
     Active Substance: VALACYCLOVIR HYDROCHLORIDE
  9. NORTRIPTYLINE [Concomitant]
     Active Substance: NORTRIPTYLINE
  10. OLMESARTIN MEDOXOMIL [Concomitant]
  11. METOPROLOL TARTRATE [Concomitant]
     Active Substance: METOPROLOL TARTRATE
  12. ELIQUIS [Concomitant]
     Active Substance: APIXABAN
  13. AMIODARONE [Concomitant]
     Active Substance: AMIODARONE
  14. DIGOXIN [Concomitant]
     Active Substance: DIGOXIN
  15. FREESTYLE LIBRA 3 [Concomitant]
  16. TUMERIC CURCUMIN [Concomitant]
  17. COENZYME Q10 [Concomitant]
     Active Substance: DIETARY SUPPLEMENT\UBIDECARENONE
  18. OMEGA 3 [Concomitant]
     Active Substance: CAPSAICIN
  19. ACETYL L CAMETINE [Concomitant]
  20. ALPHA LIPOIC [Concomitant]
  21. VITAMIN B COMPLEX [Concomitant]
     Active Substance: CYANOCOBALAMIN\DEXPANTHENOL\NIACINAMIDE\PYRIDOXINE HYDROCHLORIDE\RIBOFLAVIN 5^-PHOSPHATE SODIUM\THIA
  22. GINGER [Concomitant]
     Active Substance: GINGER
  23. GARLIC [Concomitant]
     Active Substance: GARLIC
  24. CINNAMON [Concomitant]
     Active Substance: CINNAMON
  25. PROTEIN POWDER WITH GREENS [Concomitant]

REACTIONS (14)
  - Nausea [None]
  - Lethargy [None]
  - Malaise [None]
  - Blood glucose fluctuation [None]
  - Fatigue [None]
  - Weight increased [None]
  - Gait disturbance [None]
  - Sinus tachycardia [None]
  - Heart rate irregular [None]
  - Pericardial effusion [None]
  - Pulmonary oedema [None]
  - General physical health deterioration [None]
  - Therapy cessation [None]
  - Cardiac flutter [None]

NARRATIVE: CASE EVENT DATE: 20240712
